FAERS Safety Report 17819863 (Version 2)
Quarter: 2020Q2

REPORT INFORMATION
  Report Type: Spontaneous
  Country: JP (occurrence: JP)
  Receive Date: 20200524
  Receipt Date: 20200611
  Transmission Date: 20200714
  Serious: Yes (Death)
  Sender: FDA-Public Use
  Company Number: JP-TAKEDA-2020TJP010007

PATIENT
  Age: 31 Year
  Sex: Male

DRUGS (6)
  1. LITHIUM CARBONATE. [Concomitant]
     Active Substance: LITHIUM CARBONATE
     Indication: DEPRESSIVE SYMPTOM
     Dosage: 500 MILLIGRAM, BID
     Route: 048
     Dates: start: 20160520, end: 20200509
  2. LINZESS [Concomitant]
     Active Substance: LINACLOTIDE
     Indication: CONSTIPATION
     Dosage: 0.5 MILLIGRAM, QD
     Route: 048
     Dates: start: 20170714, end: 20200509
  3. PAXIL [Concomitant]
     Active Substance: PAROXETINE HYDROCHLORIDE
     Dosage: 10 MILLIGRAM
     Route: 065
     Dates: end: 20200305
  4. PAXIL [Concomitant]
     Active Substance: PAROXETINE HYDROCHLORIDE
     Dosage: 5 MILLIGRAM
     Route: 065
     Dates: start: 20200306, end: 20200318
  5. TRINTELLIX [Suspect]
     Active Substance: VORTIOXETINE HYDROBROMIDE
     Indication: DEPRESSIVE SYMPTOM
     Dosage: 10 MILLIGRAM, QD
     Route: 048
     Dates: start: 20200221, end: 20200326
  6. TRINTELLIX [Suspect]
     Active Substance: VORTIOXETINE HYDROBROMIDE
     Dosage: 20 MILLIGRAM, QD
     Route: 048
     Dates: start: 20200327, end: 20200509

REACTIONS (2)
  - Completed suicide [Fatal]
  - Constipation [Recovered/Resolved]

NARRATIVE: CASE EVENT DATE: 202003
